FAERS Safety Report 9459837 (Version 1)
Quarter: 2013Q3

REPORT INFORMATION
  Report Type: Spontaneous
  Country: NL (occurrence: NL)
  Receive Date: 20130815
  Receipt Date: 20130815
  Transmission Date: 20140515
  Serious: Yes (Other)
  Sender: FDA-Public Use
  Company Number: NL-PFIZER INC-2013233649

PATIENT
  Age: 65 Year
  Sex: Female

DRUGS (1)
  1. VENLAFAXINE HCL [Suspect]
     Dosage: 37.5 MG, 1X/DAY
     Dates: start: 2013

REACTIONS (1)
  - Deep vein thrombosis [Unknown]
